FAERS Safety Report 6809536-7 (Version None)
Quarter: 2010Q2

REPORT INFORMATION
  Report Type: 
  Country: None (occurrence: None)
  Receive Date: 20100630
  Receipt Date: 20100617
  Transmission Date: 20101027
  Serious: Yes (Other)
  Sender: FDA-Public Use
  Company Number: PHHY2010JP37853

PATIENT
  Age: 81 Year
  Sex: Female

DRUGS (5)
  1. VOLTAREN [Suspect]
     Indication: PAIN
     Dosage: 100 MG
     Route: 054
     Dates: start: 20100528
  2. NORVASC [Concomitant]
     Dosage: UNK
  3. LIPITOR [Concomitant]
     Dosage: UNK
  4. LOSARTAN POTASSIUM AND HYDROCHLOROTHIAZIDE [Concomitant]
     Dosage: UNK
  5. PREMINANT [Concomitant]

REACTIONS (3)
  - BLOOD PRESSURE DECREASED [None]
  - ERYTHEMA [None]
  - SHOCK [None]
